FAERS Safety Report 12678439 (Version 1)
Quarter: 2016Q3

REPORT INFORMATION
  Report Type: Spontaneous
  Country: BR (occurrence: BR)
  Receive Date: 20160823
  Receipt Date: 20160823
  Transmission Date: 20161109
  Serious: Yes (Death, Other)
  Sender: FDA-Public Use
  Company Number: BR-ALEXION PHARMACEUTICALS INC.-A201405048

PATIENT
  Age: 42 Year
  Sex: Male

DRUGS (1)
  1. SOLIRIS [Suspect]
     Active Substance: ECULIZUMAB
     Indication: PAROXYSMAL NOCTURNAL HAEMOGLOBINURIA
     Dosage: UNK, SINGLE
     Route: 042
     Dates: start: 20110614, end: 20110614

REACTIONS (5)
  - Fall [Fatal]
  - Rib fracture [Fatal]
  - Sepsis [Fatal]
  - Pneumonia [Fatal]
  - Haemolysis [Unknown]

NARRATIVE: CASE EVENT DATE: 20140315
